FAERS Safety Report 4648569-6 (Version None)
Quarter: 2005Q2

REPORT INFORMATION
  Report Type: 
  Country: None (occurrence: None)
  Receive Date: 20050429
  Receipt Date: 20050421
  Transmission Date: 20051028
  Serious: Yes (Other)
  Sender: FDA-Public Use
  Company Number: US-AMGEN-US128259

PATIENT
  Sex: Male

DRUGS (3)
  1. ENBREL [Suspect]
     Indication: PSORIATIC ARTHROPATHY
     Dates: start: 20050101
  2. CYCLOSPORINE [Concomitant]
  3. METHOTREXATE [Concomitant]

REACTIONS (2)
  - HEPATIC ENZYME INCREASED [None]
  - OEDEMA PERIPHERAL [None]
